FAERS Safety Report 11413232 (Version 2)
Quarter: 2015Q4

REPORT INFORMATION
  Report Type: Report from Study
  Country: CA (occurrence: CA)
  Receive Date: 20150824
  Receipt Date: 20151204
  Transmission Date: 20160304
  Serious: Yes (Other)
  Sender: FDA-Public Use
  Company Number: CA-JNJFOC-20150814652

PATIENT
  Age: 61 Year
  Sex: Female
  Weight: 89 kg

DRUGS (5)
  1. KYOLIC [Concomitant]
     Route: 048
  2. SYNTHROID [Concomitant]
     Active Substance: LEVOTHYROXINE SODIUM
     Route: 048
  3. LOSARTAN. [Concomitant]
     Active Substance: LOSARTAN
     Route: 048
  4. STELARA [Suspect]
     Active Substance: USTEKINUMAB
     Indication: PSORIASIS
     Route: 058
     Dates: start: 20150430
  5. BIOGEST [Concomitant]
     Route: 048

REACTIONS (1)
  - Lower respiratory tract infection [Recovered/Resolved]

NARRATIVE: CASE EVENT DATE: 20150815
